FAERS Safety Report 8405693-X (Version None)
Quarter: 2012Q2

REPORT INFORMATION
  Report Type: 
  Country: None (occurrence: None)
  Receive Date: 20120604
  Receipt Date: 20120522
  Transmission Date: 20120825
  Serious: Yes (Other)
  Sender: FDA-Public Use
  Company Number: AT-AMGEN-AUTSP2012033606

PATIENT
  Age: 49 Year
  Sex: Female
  Weight: 90 kg

DRUGS (7)
  1. ENBREL [Suspect]
     Indication: PRODUCT USED FOR UNKNOWN INDICATION
     Dosage: 50 MG, WEEKLY
     Route: 058
     Dates: start: 20120419, end: 20120522
  2. FOLSAN [Concomitant]
     Dosage: 5 MG, 2X/WEEK
  3. METHOTREXATE SODIUM [Concomitant]
     Dosage: 10 MG, WEEKLY
  4. DICLOFENAC SODIUM [Concomitant]
     Dosage: 100 MG, 2X/DAY
  5. INDERAL [Concomitant]
     Dosage: 20 MG, 2X/DAY
  6. TRAZODONE HCL [Concomitant]
     Dosage: 50 MG, 1X/DAY
  7. MOTILIUM                           /00498201/ [Concomitant]
     Dosage: 10 MG, 3X/DAY

REACTIONS (2)
  - ERYTHEMA INDURATUM [None]
  - SKIN REACTION [None]
